FAERS Safety Report 10672570 (Version 3)
Quarter: 2015Q2

REPORT INFORMATION
  Report Type: Spontaneous
  Country: US (occurrence: US)
  Receive Date: 20141223
  Receipt Date: 20150622
  Transmission Date: 20150821
  Serious: Yes (Hospitalization, Other)
  Sender: FDA-Public Use
  Company Number: US-ELI_LILLY_AND_COMPANY-US201412008474

PATIENT
  Age: 24 Year
  Sex: Female

DRUGS (18)
  1. PREDNISONE. [Concomitant]
     Active Substance: PREDNISONE
  2. EPINEPHRINE. [Concomitant]
     Active Substance: EPINEPHRINE
     Dosage: UNK, PRN
  3. HIDROCORTISON [Concomitant]
     Active Substance: HYDROCORTISONE
  4. DARVOCET-N 100 [Concomitant]
     Active Substance: ACETAMINOPHEN\PROPOXYPHENE NAPSYLATE
  5. AZMACORT [Concomitant]
     Active Substance: TRIAMCINOLONE ACETONIDE
  6. BECLOVENT [Concomitant]
     Active Substance: BECLOMETHASONE DIPROPIONATE
  7. NPH INSULIN [Concomitant]
     Active Substance: INSULIN BEEF
     Dosage: 12 U, BID
  8. DILAUDID [Concomitant]
     Active Substance: HYDROMORPHONE HYDROCHLORIDE
  9. PRENATABS RX [Concomitant]
     Active Substance: VITAMINS
  10. INSULIN REGULAR HM [Concomitant]
     Active Substance: INSULIN NOS
  11. VENTOLIN HFA [Concomitant]
     Active Substance: ALBUTEROL SULFATE
     Dosage: UNK, PRN
  12. AMPICILLIN [Concomitant]
     Active Substance: AMPICILLIN
  13. ALBUTEROL SULFATE. [Concomitant]
     Active Substance: ALBUTEROL SULFATE
  14. PROZAC [Suspect]
     Active Substance: FLUOXETINE HYDROCHLORIDE
     Indication: PRODUCT USED FOR UNKNOWN INDICATION
     Dosage: UNK, UNKNOWN
     Route: 065
  15. PENICILLIN                         /00000901/ [Concomitant]
     Active Substance: PENICILLIN
  16. GAMMAGLOBULIN [Concomitant]
     Active Substance: HUMAN IMMUNOGLOBULIN G
  17. PITOCIN [Concomitant]
     Active Substance: OXYTOCIN
  18. ATROVENT [Concomitant]
     Active Substance: IPRATROPIUM BROMIDE

REACTIONS (5)
  - Exposure during breast feeding [Recovered/Resolved]
  - Premature labour [Recovered/Resolved]
  - Gestational diabetes [Unknown]
  - Asthma [Unknown]
  - Exposure during pregnancy [Recovered/Resolved]

NARRATIVE: CASE EVENT DATE: 19971007
